FAERS Safety Report 14160070 (Version 1)
Quarter: 2017Q4

REPORT INFORMATION
  Report Type: Spontaneous
  Country: FR (occurrence: FR)
  Receive Date: 20171106
  Receipt Date: 20171106
  Transmission Date: 20180321
  Serious: Yes (Hospitalization)
  Sender: FDA-Public Use
  Company Number: FR-ACCORD-060597

PATIENT
  Age: 50 Year
  Sex: Female
  Weight: 62 kg

DRUGS (4)
  1. OXALIPLATIN TEVA [Suspect]
     Active Substance: OXALIPLATIN
     Indication: COLON CANCER
     Dates: start: 20170829, end: 20170829
  2. LEVOFOLINIC ACID ZENTIVA [Suspect]
     Active Substance: LEVOLEUCOVORIN
     Indication: DRUG TOXICITY PROPHYLAXIS
     Route: 042
     Dates: start: 20170829, end: 20170829
  3. VENOFER [Suspect]
     Active Substance: IRON SUCROSE
     Indication: ANAEMIA
     Dosage: 10.8 GR/DL
     Route: 042
     Dates: start: 20170829, end: 20170829
  4. FLUOROURACIL ACCORD [Suspect]
     Active Substance: FLUOROURACIL
     Indication: COLON CANCER
     Dosage: 692 MG BOLUS INITIALLY, REST OF DOSE VIA INFUSION
     Route: 042
     Dates: start: 20170829, end: 20170829

REACTIONS (2)
  - Tonic clonic movements [Recovered/Resolved]
  - Loss of consciousness [Recovered/Resolved]

NARRATIVE: CASE EVENT DATE: 20170830
